FAERS Safety Report 13622431 (Version 2)
Quarter: 2017Q4

REPORT INFORMATION
  Report Type: Spontaneous
  Country: US (occurrence: US)
  Receive Date: 20170607
  Receipt Date: 20171207
  Transmission Date: 20180320
  Serious: Yes (Hospitalization, Other)
  Sender: FDA-Public Use
  Company Number: US-ASTRAZENECA-2017SE58153

PATIENT
  Age: 889 Month
  Sex: Male
  Weight: 76.2 kg

DRUGS (5)
  1. TUDORZA PRESSAIR [Suspect]
     Active Substance: ACLIDINIUM BROMIDE
     Indication: CHRONIC OBSTRUCTIVE PULMONARY DISEASE
     Dosage: 400UG, 1 PUFF, TWO TIMES A DAY
     Route: 055
     Dates: start: 20170125
  2. SYMBICORT [Suspect]
     Active Substance: BUDESONIDE\FORMOTEROL FUMARATE DIHYDRATE
     Indication: CHRONIC OBSTRUCTIVE PULMONARY DISEASE
     Dosage: 160/4.5 UG 1 PUFF, TWO TIMES A DAY
     Route: 055
  3. TUDORZA PRESSAIR [Suspect]
     Active Substance: ACLIDINIUM BROMIDE
     Indication: CHRONIC OBSTRUCTIVE PULMONARY DISEASE
     Dosage: 400UG, 1 PUFF, TWO TIMES A DAY
     Route: 055
     Dates: start: 20170516
  4. ADVAIR HFA [Concomitant]
     Active Substance: FLUTICASONE PROPIONATE\SALMETEROL XINAFOATE
     Indication: CHRONIC OBSTRUCTIVE PULMONARY DISEASE
     Route: 055
  5. PROAIR HFA [Concomitant]
     Active Substance: ALBUTEROL SULFATE
     Indication: CHRONIC OBSTRUCTIVE PULMONARY DISEASE
     Dosage: 90.0UG AS REQUIRED
     Route: 055

REACTIONS (7)
  - Pulmonary thrombosis [Unknown]
  - Gait inability [Unknown]
  - Off label use [Recovered/Resolved]
  - Intentional product misuse [Unknown]
  - Brain injury [Unknown]
  - Cerebrovascular accident [Unknown]
  - Device malfunction [Unknown]

NARRATIVE: CASE EVENT DATE: 201507
